FAERS Safety Report 18415809 (Version 2)
Quarter: 2020Q4

REPORT INFORMATION
  Report Type: Spontaneous
  Country: JP (occurrence: JP)
  Receive Date: 20201022
  Receipt Date: 20201119
  Transmission Date: 20210114
  Serious: Yes (Death, Other)
  Sender: FDA-Public Use
  Company Number: JP-ELI_LILLY_AND_COMPANY-JP202010007789

PATIENT
  Age: 60 Year
  Sex: Male
  Weight: 78 kg

DRUGS (5)
  1. METHYLPREDNISOLONE ACETATE. [Concomitant]
     Active Substance: METHYLPREDNISOLONE ACETATE
     Dosage: 40 MG, SINGLE
     Route: 041
     Dates: start: 20200909, end: 20200909
  2. AMLODIPINE [Concomitant]
     Active Substance: AMLODIPINE BESYLATE
     Indication: HYPERTENSION
     Dosage: 5 MG, DAILY
     Route: 048
     Dates: start: 20190529, end: 20201002
  3. THYRADIN-S [Concomitant]
     Active Substance: LEVOTHYROXINE
     Indication: HYPOTHYROIDISM
     Dosage: 200 UG, DAILY
     Route: 048
     Dates: start: 20190529, end: 20201002
  4. CYRAMZA [Suspect]
     Active Substance: RAMUCIRUMAB
     Indication: HEPATOCELLULAR CARCINOMA
     Dosage: 600 MG
     Route: 041
     Dates: start: 20200909, end: 20200909
  5. LENVATINIB MESILATE [Concomitant]
     Active Substance: LENVATINIB MESYLATE
     Indication: HEPATOCELLULAR CARCINOMA
     Dosage: 12 MG, DAILY
     Dates: start: 20190527, end: 20200907

REACTIONS (3)
  - Hepatic failure [Fatal]
  - Feeling abnormal [Fatal]
  - Jaundice [Fatal]

NARRATIVE: CASE EVENT DATE: 20200909
